FAERS Safety Report 10227111 (Version 1)
Quarter: 2014Q2

REPORT INFORMATION
  Report Type: Spontaneous
  Country: US (occurrence: None)
  Receive Date: 20140609
  Receipt Date: 20140609
  Transmission Date: 20141212
  Serious: No
  Sender: FDA-Public Use
  Company Number: None

PATIENT
  Age: 74 Year
  Sex: Female

DRUGS (1)
  1. AFINITOR [Suspect]
     Indication: BREAST CANCER FEMALE
     Route: 048
     Dates: start: 20140513, end: 20140529

REACTIONS (4)
  - Insomnia [None]
  - Skin exfoliation [None]
  - Arthralgia [None]
  - Aphagia [None]
